FAERS Safety Report 5105838-3 (Version None)
Quarter: 2006Q3

REPORT INFORMATION
  Report Type: 
  Country: None (occurrence: None)
  Receive Date: 20060915
  Receipt Date: 20060907
  Transmission Date: 20061208
  Serious: Yes (Hospitalization)
  Sender: FDA-Public Use
  Company Number: US-GLAXOSMITHKLINE-A0619395A

PATIENT
  Age: 46 Year
  Sex: Male

DRUGS (16)
  1. LAMICTAL [Suspect]
     Indication: BIPOLAR DISORDER
     Dosage: 100MG TWICE PER DAY
     Route: 048
     Dates: start: 20050101
  2. SEROQUEL [Suspect]
  3. ALBUTEROL [Concomitant]
  4. OXYGEN [Concomitant]
  5. ADVAIR DISKUS 100/50 [Concomitant]
  6. SPIRIVA [Concomitant]
  7. PREDNISONE TAB [Concomitant]
  8. NORVASC [Concomitant]
  9. TRICOR [Concomitant]
  10. COMBIVENT [Concomitant]
  11. ASPIRIN [Concomitant]
  12. LASIX [Concomitant]
  13. TRAZODONE HCL [Concomitant]
  14. CLONAZEPAM [Concomitant]
  15. ABILIFY [Concomitant]
  16. LEXAPRO [Concomitant]

REACTIONS (4)
  - CHEST PAIN [None]
  - DRUG INEFFECTIVE [None]
  - POLYCYTHAEMIA [None]
  - WEIGHT INCREASED [None]
